FAERS Safety Report 9537672 (Version 1)
Quarter: 2013Q3

REPORT INFORMATION
  Report Type: Spontaneous
  Country: US (occurrence: US)
  Receive Date: 20130919
  Receipt Date: 20130919
  Transmission Date: 20140515
  Serious: Yes (Hospitalization)
  Sender: FDA-Public Use
  Company Number: US-ELI_LILLY_AND_COMPANY-US201309005326

PATIENT
  Sex: Female

DRUGS (2)
  1. FORTEO [Suspect]
     Indication: OSTEOPOROSIS
     Dosage: UNK, QD
     Dates: start: 2009
  2. FORTEO [Suspect]
     Indication: MULTIPLE FRACTURES

REACTIONS (3)
  - Spinal cord disorder [Unknown]
  - Sciatica [Unknown]
  - Inappropriate schedule of drug administration [Not Recovered/Not Resolved]
